FAERS Safety Report 7523450-3 (Version None)
Quarter: 2011Q2

REPORT INFORMATION
  Report Type: 
  Country: None (occurrence: None)
  Receive Date: 20110601
  Receipt Date: 20110601
  Transmission Date: 20111010
  Serious: Yes (Hospitalization)
  Sender: FDA-Public Use
  Company Number: None

PATIENT
  Sex: Female
  Weight: 77.45 kg

DRUGS (1)
  1. TAXOL [Suspect]
     Dosage: 313 MG

REACTIONS (15)
  - CHEST X-RAY ABNORMAL [None]
  - BLOOD ALBUMIN DECREASED [None]
  - OCCULT BLOOD POSITIVE [None]
  - BLOOD CALCIUM DECREASED [None]
  - NAUSEA [None]
  - OXYGEN SATURATION DECREASED [None]
  - DEVICE RELATED SEPSIS [None]
  - MALIGNANT ASCITES [None]
  - NEUTROPHIL COUNT DECREASED [None]
  - PLATELET COUNT DECREASED [None]
  - VOMITING [None]
  - SMALL INTESTINAL OBSTRUCTION [None]
  - ALTERED STATE OF CONSCIOUSNESS [None]
  - STAPHYLOCOCCUS TEST POSITIVE [None]
  - HAEMATOCRIT DECREASED [None]
